FAERS Safety Report 6279974-2 (Version None)
Quarter: 2009Q3

REPORT INFORMATION
  Report Type: 
  Country: None (occurrence: None)
  Receive Date: 20090723
  Receipt Date: 20090326
  Transmission Date: 20100115
  Serious: Yes (Other)
  Sender: FDA-Public Use
  Company Number: TR-ELI_LILLY_AND_COMPANY-TR200907000802

PATIENT
  Age: 66 Year
  Sex: Female

DRUGS (5)
  1. HUMALOG MIX 75/25 [Suspect]
     Indication: DIABETES MELLITUS
     Dosage: 24 IU, EACH MORNING
     Route: 058
     Dates: start: 20070919
  2. HUMALOG MIX 75/25 [Suspect]
     Dosage: 35 IU, EACH EVENING
     Route: 058
     Dates: start: 20070919
  3. DOXIUM [Concomitant]
     Indication: EYE HAEMORRHAGE
     Dosage: UNK UNK, 2/D
     Route: 048
  4. DIAZOMID [Concomitant]
     Indication: EYE HAEMORRHAGE
     Dosage: UNK UNK, DAILY (1/D)
     Route: 048
  5. PRITOR PLUS [Concomitant]
     Indication: HYPERTENSION
     Dosage: UNK UNK, DAILY (1/D)
     Route: 048

REACTIONS (2)
  - EYE HAEMORRHAGE [None]
  - HYPOAESTHESIA [None]
